FAERS Safety Report 5800041-3 (Version None)
Quarter: 2008Q3

REPORT INFORMATION
  Report Type: 
  Country: None (occurrence: None)
  Receive Date: 20080703
  Receipt Date: 20080623
  Transmission Date: 20090109
  Serious: Yes (Other)
  Sender: FDA-Public Use
  Company Number: GB-AMGEN-US134528

PATIENT
  Sex: Male

DRUGS (2)
  1. ETANERCEPT [Suspect]
     Indication: AMYLOIDOSIS
     Route: 058
  2. ETANERCEPT [Suspect]
     Indication: ARTHRITIS
     Route: 058

REACTIONS (1)
  - ENDOCARDITIS BACTERIAL [None]
